FAERS Safety Report 8588222 (Version 3)
Quarter: 2012Q4

REPORT INFORMATION
  Report Type: 
  Country: US (occurrence: US)
  Receive Date: 20120531
  Receipt Date: 20121002
  Transmission Date: 20130627
  Serious: No
  Sender: FDA-Public Use
  Company Number: US-ASTRAZENECA-2012SE32251

PATIENT
  Age: 49 Year
  Sex: Male
  Weight: 81.6 kg

DRUGS (7)
  1. SEROQUEL [Suspect]
     Indication: ANXIETY
     Route: 048
  2. SEROQUEL [Suspect]
     Indication: ANXIETY
     Route: 048
  3. SEROQUEL [Suspect]
     Indication: ANXIETY
     Route: 048
  4. VALIUM [Concomitant]
  5. ATIVAN [Concomitant]
  6. CLONAZEPAM [Concomitant]
  7. LIBRIUM [Concomitant]

REACTIONS (6)
  - Hangover [Unknown]
  - Feeling abnormal [Unknown]
  - Insomnia [Unknown]
  - Tachyphrenia [Unknown]
  - Dyspnoea [Unknown]
  - Drug dose omission [Unknown]
